FAERS Safety Report 6510910-7 (Version None)
Quarter: 2009Q4

REPORT INFORMATION
  Report Type: 
  Country: None (occurrence: None)
  Receive Date: 20091222
  Receipt Date: 20090202
  Transmission Date: 20100525
  Serious: No
  Sender: FDA-Public Use
  Company Number: US-ASTRAZENECA-2009UW02962

PATIENT
  Age: 66 Year
  Sex: Female
  Weight: 68 kg

DRUGS (5)
  1. CRESTOR [Suspect]
     Dosage: TAKES HALF OF 10 MG TABLET DAILY
     Route: 048
  2. CRESTOR [Suspect]
     Dosage: HALF OF 10 MG TABLET EVERY OTHER DAY
     Route: 048
  3. AVALIDE [Concomitant]
     Dates: start: 20080101
  4. NIFEDIPINE [Concomitant]
  5. NEXIUM [Concomitant]

REACTIONS (2)
  - DIZZINESS [None]
  - VERTIGO [None]
